FAERS Safety Report 4844957-3 (Version None)
Quarter: 2005Q4

REPORT INFORMATION
  Report Type: 
  Country: None (occurrence: None)
  Receive Date: 20051129
  Receipt Date: 20051116
  Transmission Date: 20060501
  Serious: Yes (Hospitalization)
  Sender: FDA-Public Use
  Company Number: 2005157472

PATIENT
  Age: 99 Year
  Sex: Female
  Weight: 67 kg

DRUGS (8)
  1. ALDACTONE [Suspect]
     Indication: CARDIAC FAILURE
     Dosage: 25 MG (25 MG), ORAL
     Route: 048
     Dates: start: 20050905, end: 20050909
  2. MIRTAZAPINE [Suspect]
     Indication: AGITATION
     Dosage: 15 MG (15 MG), ORAL
     Route: 048
     Dates: start: 20050905, end: 20050909
  3. RISPERDAL [Concomitant]
  4. INSULATARD NPH HUMAN [Concomitant]
  5. ANTALVIC      (DEXTROPROPOXYPHENE HYDROCHLORIDE) [Concomitant]
  6. ASPIRIN [Concomitant]
  7. SPECIAFOLDINE  (FOLIC ACID) [Concomitant]
  8. MOVICOL [Concomitant]

REACTIONS (20)
  - ABDOMINAL DISTENSION [None]
  - ALANINE AMINOTRANSFERASE INCREASED [None]
  - ASPARTATE AMINOTRANSFERASE INCREASED [None]
  - BLOOD ALKALINE PHOSPHATASE INCREASED [None]
  - BLOOD UREA INCREASED [None]
  - C-REACTIVE PROTEIN INCREASED [None]
  - CREPITATIONS [None]
  - DEHYDRATION [None]
  - DEPRESSED LEVEL OF CONSCIOUSNESS [None]
  - DIABETES MELLITUS INADEQUATE CONTROL [None]
  - FLATULENCE [None]
  - GAMMA-GLUTAMYLTRANSFERASE INCREASED [None]
  - HAEMOGLOBIN DECREASED [None]
  - HYPERTONIA [None]
  - HYPOTENSION [None]
  - OEDEMA PERIPHERAL [None]
  - PITTING OEDEMA [None]
  - RALES [None]
  - SINUS TACHYCARDIA [None]
  - SOMNOLENCE [None]
